FAERS Safety Report 10652507 (Version 1)
Quarter: 2014Q4

REPORT INFORMATION
  Report Type: Spontaneous
  Country: US (occurrence: None)
  Receive Date: 20141212
  Receipt Date: 20141212
  Transmission Date: 20150529
  Serious: Yes (Hospitalization, Disabling, Other)
  Sender: FDA-Public Use
  Company Number: None

PATIENT
  Age: 64 Year
  Sex: Female
  Weight: 97.52 kg

DRUGS (8)
  1. ALPRAZOLAM. [Concomitant]
     Active Substance: ALPRAZOLAM
  2. DOCUSI [Concomitant]
  3. METFORMIN [Concomitant]
     Active Substance: METFORMIN HYDROCHLORIDE
  4. GABAPENTIN. [Concomitant]
     Active Substance: GABAPENTIN
  5. ISOSORBIDE [Concomitant]
     Active Substance: ISOSORBIDE
  6. OMEPRAZOLE. [Concomitant]
     Active Substance: OMEPRAZOLE
  7. BENAZEPRIL [Concomitant]
     Active Substance: BENAZEPRIL\BENAZEPRIL HYDROCHLORIDE
  8. ZALEPLON. [Suspect]
     Active Substance: ZALEPLON
     Indication: INITIAL INSOMNIA
     Route: 048
     Dates: start: 20141117, end: 20141125

REACTIONS (8)
  - Stress [None]
  - Panic reaction [None]
  - Hypertension [None]
  - Abasia [None]
  - Pain in extremity [None]
  - Anxiety [None]
  - Confusional state [None]
  - Abdominal pain upper [None]

NARRATIVE: CASE EVENT DATE: 20141117
